FAERS Safety Report 15600407 (Version 2)
Quarter: 2019Q1

REPORT INFORMATION
  Report Type: Spontaneous
  Country: JP (occurrence: JP)
  Receive Date: 20181109
  Receipt Date: 20190312
  Transmission Date: 20190417
  Serious: Yes (Death, Hospitalization, Other)
  Sender: FDA-Public Use
  Company Number: JP-PFIZER INC-2018456601

PATIENT
  Age: 66 Year
  Sex: Male
  Weight: 76.2 kg

DRUGS (7)
  1. SOSEGON INJECTION 15 MG [Concomitant]
     Indication: SEDATION
     Dosage: 30 MG, 1X/DAY
     Route: 042
     Dates: start: 20180720, end: 20180720
  2. PRECEDEX [Suspect]
     Active Substance: DEXMEDETOMIDINE HYDROCHLORIDE
     Indication: SEDATION
     Dosage: 86.4 UG, 1X/DAY
     Route: 042
     Dates: start: 20180720, end: 20180720
  3. ITRIZOLE INJECTION 0.5G [Concomitant]
     Indication: SEDATION
     Dosage: 100 MG, 1X/DAY
     Route: 042
     Dates: start: 20180720, end: 20180720
  4. PROTAMINE SULFATE MOCHIDA [Concomitant]
     Indication: HEPARIN NEUTRALISATION THERAPY
     Dosage: 100 MG, 1X/DAY
     Route: 042
     Dates: start: 20180720, end: 20180720
  5. ATARAX [Concomitant]
     Active Substance: HYDROXYZINE HYDROCHLORIDE
     Indication: SEDATION
     Dosage: 25 MG, 1X/DAY
     Route: 042
     Dates: start: 20180720, end: 20180720
  6. HEPARIN SODIUM MOCHIDA [Concomitant]
     Indication: ANTICOAGULANT THERAPY
     Dosage: 500 UNITS, 1X/DAY
     Dates: start: 20180720, end: 20180720
  7. NICARDIPINE HYDROCHLORIDE. [Concomitant]
     Active Substance: NICARDIPINE HYDROCHLORIDE
     Indication: HYPERTENSION
     Dosage: 4 MG, 2X/DAY
     Route: 042
     Dates: start: 20180720, end: 20180720

REACTIONS (4)
  - Hepatitis fulminant [Fatal]
  - Metabolic acidosis [Unknown]
  - Ventricular fibrillation [Not Recovered/Not Resolved]
  - Hypotension [Unknown]

NARRATIVE: CASE EVENT DATE: 20180720
